FAERS Safety Report 14370516 (Version 4)
Quarter: 2018Q1

REPORT INFORMATION
  Report Type: Spontaneous
  Country: US (occurrence: US)
  Receive Date: 20180110
  Receipt Date: 20180219
  Transmission Date: 20180509
  Serious: No
  Sender: FDA-Public Use
  Company Number: US-PFIZER INC-2018005014

PATIENT
  Age: 86 Year
  Sex: Female
  Weight: 64 kg

DRUGS (4)
  1. IBRANCE [Suspect]
     Active Substance: PALBOCICLIB
     Indication: BREAST CANCER FEMALE
     Dosage: 125 MG, CYCLIC (125 MG CAPSULE ONCE DAILY FOR 21 DAYS AND THEN 7 DAYS OFF)
     Dates: start: 20171207, end: 20171221
  2. LISINOPRIL. [Concomitant]
     Active Substance: LISINOPRIL
     Indication: HYPERTENSION
     Dosage: 5 MG, 1X/DAY (HAS BEEN TAKING IT FOR 2 YEARS OR SO)
  3. IBRANCE [Suspect]
     Active Substance: PALBOCICLIB
     Dosage: 100 MG, 1X/DAY
  4. RABEPRAZOLE [Concomitant]
     Active Substance: RABEPRAZOLE
     Dosage: 20 MG, 1X/DAY (HAS BEEN TAKING THIS FOR 20 YEARS)

REACTIONS (6)
  - Memory impairment [Unknown]
  - Condition aggravated [Unknown]
  - White blood cell count decreased [Recovered/Resolved]
  - Diarrhoea [Unknown]
  - Epistaxis [Recovered/Resolved]
  - Malaise [Unknown]

NARRATIVE: CASE EVENT DATE: 20171207
